FAERS Safety Report 18969412 (Version 1)
Quarter: 2021Q1

REPORT INFORMATION
  Report Type: Spontaneous
  Country: US (occurrence: US)
  Receive Date: 20210304
  Receipt Date: 20210304
  Transmission Date: 20210420
  Serious: Yes (Other)
  Sender: FDA-Public Use
  Company Number: US-FRESENIUS KABI-FK202101837

PATIENT
  Age: 61 Year
  Weight: 76.5 kg

DRUGS (1)
  1. POTASSIUM CHLORIDE FOR INJECTION CONCENTRATE, USP [Suspect]
     Active Substance: POTASSIUM CHLORIDE
     Indication: PRODUCT USED FOR UNKNOWN INDICATION
     Dosage: UNK
     Route: 042
     Dates: start: 20210120, end: 20210120

REACTIONS (1)
  - Therapeutic product effect increased [Recovered/Resolved]

NARRATIVE: CASE EVENT DATE: 20210120
